FAERS Safety Report 15036756 (Version 1)
Quarter: 2018Q2

REPORT INFORMATION
  Report Type: Spontaneous
  Country: US (occurrence: US)
  Receive Date: 20180530
  Receipt Date: 20180530
  Transmission Date: 20180711
  Serious: Yes (Hospitalization)
  Sender: FDA-Public Use
  Company Number: None

PATIENT
  Age: 53 Year
  Sex: Female
  Weight: 49 kg

DRUGS (9)
  1. SULFAMETHOXAZOLE/TRIMETHOPRIM DS [Suspect]
     Active Substance: SULFAMETHOXAZOLE\TRIMETHOPRIM
     Indication: URINARY TRACT INFECTION
     Dosage: 800/160 MG BID, PO
     Route: 048
     Dates: start: 20180415, end: 20180416
  2. GLULISINE [Concomitant]
  3. GLARGINE [Concomitant]
  4. RISPERDAL [Concomitant]
     Active Substance: RISPERIDONE
  5. SIMVASTATIN. [Concomitant]
     Active Substance: SIMVASTATIN
  6. LOSARTAN. [Concomitant]
     Active Substance: LOSARTAN
  7. RISPERDAL CONSTA [Concomitant]
     Active Substance: RISPERIDONE
  8. LEVOTHYROXINE. [Concomitant]
     Active Substance: LEVOTHYROXINE
  9. PANTOPRAZOLE [Concomitant]
     Active Substance: PANTOPRAZOLE

REACTIONS (12)
  - Faecal volume increased [None]
  - Acute kidney injury [None]
  - Blood lactic acid increased [None]
  - Pneumonia [None]
  - Blister [None]
  - Fixed eruption [None]
  - Procalcitonin increased [None]
  - Nikolsky^s sign [None]
  - Wound [None]
  - Sepsis [None]
  - Staphylococcal scalded skin syndrome [None]
  - Skin erosion [None]

NARRATIVE: CASE EVENT DATE: 20180417
